FAERS Safety Report 4806170-5 (Version None)
Quarter: 2005Q4

REPORT INFORMATION
  Report Type: 
  Country: None (occurrence: None)
  Receive Date: 20051021
  Receipt Date: 20050328
  Transmission Date: 20060501
  Serious: Yes (Hospitalization, Disabling, Other)
  Sender: FDA-Public Use
  Company Number: US-MERCK-0503USA04949

PATIENT
  Age: 44 Year
  Sex: Male
  Weight: 123 kg

DRUGS (2)
  1. VIOXX [Suspect]
     Indication: MUSCULOSKELETAL DISCOMFORT
     Route: 048
     Dates: end: 20041001
  2. PERCOCET [Concomitant]
     Route: 065

REACTIONS (13)
  - ANGINA PECTORIS [None]
  - BLOOD CHOLESTEROL INCREASED [None]
  - BLOOD TRIGLYCERIDES INCREASED [None]
  - CORONARY ARTERIAL STENT INSERTION [None]
  - CORONARY ARTERY DISEASE [None]
  - DEPRESSION [None]
  - DIABETES MELLITUS [None]
  - HIGH DENSITY LIPOPROTEIN DECREASED [None]
  - HYPERTENSION [None]
  - LOW DENSITY LIPOPROTEIN INCREASED [None]
  - MYOCARDIAL INFARCTION [None]
  - OEDEMA PERIPHERAL [None]
  - SLEEP APNOEA SYNDROME [None]
